FAERS Safety Report 25536449 (Version 1)
Quarter: 2025Q3

REPORT INFORMATION
  Report Type: Spontaneous
  Country: US (occurrence: US)
  Receive Date: 20250709
  Receipt Date: 20250709
  Transmission Date: 20251021
  Serious: Yes (Life-Threatening, Hospitalization)
  Sender: BOEHRINGER INGELHEIM
  Company Number: US-BoehringerIngelheim-2025-BI-081867

PATIENT
  Age: 72 Year
  Sex: Female

DRUGS (3)
  1. SPESOLIMAB [Suspect]
     Active Substance: SPESOLIMAB
     Indication: Generalised pustular psoriasis
  2. SPESOLIMAB [Suspect]
     Active Substance: SPESOLIMAB
  3. SPESOLIMAB [Suspect]
     Active Substance: SPESOLIMAB
     Indication: Generalised pustular psoriasis

REACTIONS (2)
  - Distributive shock [Recovering/Resolving]
  - General physical health deterioration [Unknown]
